FAERS Safety Report 10013323 (Version 1)
Quarter: 2014Q1

REPORT INFORMATION
  Report Type: Spontaneous
  Country: US (occurrence: US)
  Receive Date: 20140314
  Receipt Date: 20140314
  Transmission Date: 20141002
  Serious: No
  Sender: FDA-Public Use
  Company Number: US-PFIZER INC-2014074939

PATIENT
  Age: 62 Year
  Sex: Female
  Weight: 43.08 kg

DRUGS (2)
  1. RELPAX [Suspect]
     Indication: MIGRAINE
     Dosage: 40 MG, DAILY
  2. TOPAMAX [Concomitant]
     Dosage: 75 MG, DAILY
     Dates: start: 2014

REACTIONS (3)
  - Intentional drug misuse [Unknown]
  - Headache [Unknown]
  - Middle insomnia [Unknown]
